FAERS Safety Report 4349254-0 (Version None)
Quarter: 2004Q2

REPORT INFORMATION
  Report Type: 
  Country: None (occurrence: None)
  Receive Date: 20040412
  Receipt Date: 20030326
  Transmission Date: 20050107
  Serious: Yes (Hospitalization, Other)
  Sender: FDA-Public Use
  Company Number: HQWYE346628MAR03

PATIENT
  Age: 33 Month
  Sex: Male
  Weight: 16 kg

DRUGS (4)
  1. BENEFIX [Suspect]
     Dosage: SEE IMAGE
     Route: 040
  2. . [Concomitant]
  3. . [Concomitant]
  4. . [Concomitant]

REACTIONS (1)
  - COAGULATION FACTOR IX LEVEL DECREASED [None]
